FAERS Safety Report 21937937 (Version 1)
Quarter: 2023Q1

REPORT INFORMATION
  Report Type: Spontaneous
  Country: US (occurrence: US)
  Receive Date: 20230201
  Receipt Date: 20230201
  Transmission Date: 20230418
  Serious: Yes (Hospitalization, Other)
  Sender: FDA-Public Use
  Company Number: US-BAYER-2023P005133

PATIENT
  Age: 61 Year
  Sex: Male

DRUGS (15)
  1. STIVARGA [Suspect]
     Active Substance: REGORAFENIB
     Indication: Product used for unknown indication
     Dosage: 80 MG, QD
  2. STIVARGA [Suspect]
     Active Substance: REGORAFENIB
     Indication: Product used for unknown indication
     Dosage: 120 MG, QD
  3. STIVARGA [Suspect]
     Active Substance: REGORAFENIB
     Indication: Product used for unknown indication
     Dosage: 80 MG, QD
  4. STIVARGA [Suspect]
     Active Substance: REGORAFENIB
     Indication: Product used for unknown indication
     Dosage: 120 MG, QD
  5. LONSURF [Suspect]
     Active Substance: TIPIRACIL HYDROCHLORIDE\TRIFLURIDINE
     Indication: Rectosigmoid cancer
     Dosage: 80 MG IN THE MORNING AND 60 MG IN THE EVENING
     Dates: end: 20220926
  6. LEUCOVORIN CALCIUM [Concomitant]
     Active Substance: LEUCOVORIN CALCIUM
     Dosage: UNK
  7. FLUOROURACIL [Concomitant]
     Active Substance: FLUOROURACIL
     Indication: Product used for unknown indication
     Dosage: UNK
  8. LOSARTAN [Concomitant]
     Active Substance: LOSARTAN
     Indication: Product used for unknown indication
     Dosage: UNK
  9. METOPROLOL [Concomitant]
     Active Substance: METOPROLOL
     Indication: Product use in unapproved indication
     Dosage: UNK
  10. DIAZEPAM [Concomitant]
     Active Substance: DIAZEPAM
     Indication: Product used for unknown indication
     Dosage: UNK
  11. CEFPODOXIME PROXETIL [Concomitant]
     Active Substance: CEFPODOXIME PROXETIL
     Indication: Product use in unapproved indication
     Dosage: UNK
  12. DOXYCYCLINE HYCLATE [Concomitant]
     Active Substance: DOXYCYCLINE HYCLATE
     Indication: Product used for unknown indication
     Dosage: UNK
  13. FLOVENT [Concomitant]
     Active Substance: FLUTICASONE PROPIONATE
     Indication: Product used for unknown indication
     Dosage: UNK
  14. BENZONATATE [Concomitant]
     Active Substance: BENZONATATE
     Indication: Product use in unapproved indication
     Dosage: UNK
  15. TRIAMTERENE [Concomitant]
     Active Substance: TRIAMTERENE
     Dosage: UNK

REACTIONS (26)
  - COVID-19 pneumonia [Recovered/Resolved]
  - Large intestine perforation [Unknown]
  - Pneumothorax [Unknown]
  - COVID-19 [Recovered/Resolved]
  - Haematochezia [None]
  - Malignant neoplasm progression [None]
  - Dyspnoea [None]
  - Constipation [None]
  - Influenza [Unknown]
  - Infection [None]
  - White blood cell count decreased [None]
  - Therapeutic response unexpected [None]
  - Pyrexia [None]
  - Cough [None]
  - Hypoaesthesia [None]
  - Hyperkeratosis [None]
  - Palmar-plantar erythrodysaesthesia syndrome [None]
  - Pain [None]
  - Dehydration [None]
  - Weight decreased [None]
  - Gait disturbance [None]
  - Paraesthesia [None]
  - Skin disorder [Recovered/Resolved]
  - Skin induration [Recovered/Resolved]
  - Pain of skin [None]
  - Off label use [None]

NARRATIVE: CASE EVENT DATE: 20220601
